FAERS Safety Report 8423993-4 (Version None)
Quarter: 2012Q2

REPORT INFORMATION
  Report Type: 
  Country: None (occurrence: None)
  Receive Date: 20120608
  Receipt Date: 20111125
  Transmission Date: 20120825
  Serious: No
  Sender: FDA-Public Use
  Company Number: US-ASTRAZENECA-2010SE51405

PATIENT
  Age: 51 Year
  Sex: Female

DRUGS (3)
  1. PULMICORT FLEXHALER [Suspect]
     Route: 055
  2. PULMICORT FLEXHALER [Suspect]
     Indication: ASTHMA
     Dosage: 360 MCGS TWO PUFFS BID
     Route: 055
  3. PULMICORT FLEXHALER [Suspect]
     Dosage: 180 MCG 2 PUFFS BID
     Route: 055
     Dates: start: 20111001

REACTIONS (4)
  - HEADACHE [None]
  - CIRCUMSTANCE OR INFORMATION CAPABLE OF LEADING TO MEDICATION ERROR [None]
  - DYSGEUSIA [None]
  - THROAT IRRITATION [None]
